FAERS Safety Report 25115811 (Version 1)
Quarter: 2025Q1

REPORT INFORMATION
  Report Type: Spontaneous
  Country: US (occurrence: US)
  Receive Date: 20250325
  Receipt Date: 20250325
  Transmission Date: 20250408
  Serious: No
  Sender: ROCHE
  Company Number: US-ROCHE-10000233579

PATIENT
  Age: 51 Year
  Sex: Female
  Weight: 120.2 kg

DRUGS (2)
  1. XOLAIR [Suspect]
     Active Substance: OMALIZUMAB
     Indication: Urticaria
     Dosage: MOST RECENT XOLAIR ON 08-MAR-2025.
     Route: 065
  2. XOLAIR [Suspect]
     Active Substance: OMALIZUMAB

REACTIONS (3)
  - Rash [Not Recovered/Not Resolved]
  - Feeling hot [Unknown]
  - Burning sensation [Unknown]

NARRATIVE: CASE EVENT DATE: 20250311
